FAERS Safety Report 16482678 (Version 1)
Quarter: 2019Q2

REPORT INFORMATION
  Report Type: Spontaneous
  Country: NL (occurrence: NL)
  Receive Date: 20190627
  Receipt Date: 20190627
  Transmission Date: 20190711
  Serious: Yes (Life-Threatening)
  Sender: FDA-Public Use
  Company Number: NL-ACCORD-135289

PATIENT
  Age: 76 Year
  Sex: Female

DRUGS (10)
  1. EXFORGE [Concomitant]
     Active Substance: AMLODIPINE BESYLATE\VALSARTAN
     Dosage: 10/160/25 MG
  2. VICTOZA [Concomitant]
     Active Substance: LIRAGLUTIDE
  3. OMEPRAZOLE. [Concomitant]
     Active Substance: OMEPRAZOLE
     Dosage: 1DD
  4. TOUJEO INSULIN [Concomitant]
  5. METOPROLOL. [Concomitant]
     Active Substance: METOPROLOL
     Dosage: 1DD1  100 MG MGA
  6. BRILIQUE [Concomitant]
     Active Substance: TICAGRELOR
     Dosage: 2X 90MG
  7. EZETIMIBE. [Concomitant]
     Active Substance: EZETIMIBE
     Dosage: 1DD
  8. AMITRIPTYLINE [Suspect]
     Active Substance: AMITRIPTYLINE
     Indication: PRODUCT USED FOR UNKNOWN INDICATION
     Dosage: 1 X 10MG
     Dates: start: 20190517, end: 20190519
  9. REPATHA [Concomitant]
     Active Substance: EVOLOCUMAB
  10. CARBASALATE [Concomitant]
     Active Substance: CARBASPIRIN
     Dosage: 1DD1

REACTIONS (1)
  - Hypoglycaemia [Recovered/Resolved]

NARRATIVE: CASE EVENT DATE: 20190519
